FAERS Safety Report 6232500-6 (Version None)
Quarter: 2009Q2

REPORT INFORMATION
  Report Type: 
  Country: None (occurrence: None)
  Receive Date: 20090617
  Receipt Date: 20090609
  Transmission Date: 20091009
  Serious: Yes (Other)
  Sender: FDA-Public Use
  Company Number: TR-BAYER-200922836GPV

PATIENT
  Age: 33 Year
  Sex: Female

DRUGS (3)
  1. CIPROFLOXACIN [Suspect]
     Indication: FEBRILE NEUTROPENIA
     Route: 065
  2. VANCOMYCIN HCL [Suspect]
     Indication: FEBRILE NEUTROPENIA
     Dosage: 1 X 1 G 2/7
     Route: 065
  3. CEFEPIME [Suspect]
     Indication: FEBRILE NEUTROPENIA
     Route: 065

REACTIONS (3)
  - DISORIENTATION [None]
  - LOSS OF CONSCIOUSNESS [None]
  - STATUS EPILEPTICUS [None]
